FAERS Safety Report 8723398 (Version 3)
Quarter: 2014Q1

REPORT INFORMATION
  Report Type: Spontaneous
  Country: US (occurrence: US)
  Receive Date: 20120814
  Receipt Date: 20140103
  Transmission Date: 20141002
  Serious: No
  Sender: FDA-Public Use
  Company Number: US-ASTRAZENECA-2010SE19465

PATIENT
  Age: 60 Year
  Sex: Female
  Weight: 65.8 kg

DRUGS (16)
  1. SEROQUEL [Suspect]
     Indication: BIPOLAR DISORDER
     Route: 048
     Dates: start: 2008, end: 2011
  2. SEROQUEL [Suspect]
     Indication: BIPOLAR DISORDER
     Route: 048
     Dates: start: 20100329, end: 2010
  3. SEROQUEL [Suspect]
     Indication: BIPOLAR DISORDER
     Route: 048
     Dates: start: 2010, end: 2010
  4. SEROQUEL [Suspect]
     Indication: BIPOLAR DISORDER
     Dosage: 100 MG, 5 AND A HALF TABLETS
     Route: 048
  5. SEROQUEL [Suspect]
     Indication: BIPOLAR DISORDER
     Dosage: GENERIC, AS REQUIRED
     Route: 048
     Dates: start: 201208
  6. SEROQUEL [Suspect]
     Indication: BIPOLAR DISORDER
     Dosage: 100 MG, TAKE 3 AND 1/2 TABLETS AT BEDTIME. TOTAL DAILY DOSE - 350 MG
     Route: 048
  7. SEROQUEL [Suspect]
     Indication: BIPOLAR DISORDER
     Route: 048
     Dates: start: 2011, end: 201312
  8. SEROQUEL [Suspect]
     Indication: BIPOLAR DISORDER
     Dosage: GENERIC, DAILY
     Route: 048
     Dates: start: 2013, end: 2013
  9. SEROQUEL [Suspect]
     Indication: BIPOLAR DISORDER
     Route: 048
  10. PEPCID [Concomitant]
     Indication: HYPERCHLORHYDRIA
     Route: 048
     Dates: start: 1993
  11. NORCO [Concomitant]
     Route: 048
  12. HALCION [Concomitant]
     Indication: SLEEP DISORDER
     Dosage: 0.25 MG, 1 1/2 TABLETS AT NIGHT
     Route: 048
     Dates: start: 2008
  13. XANAX [Concomitant]
     Indication: PANIC ATTACK
     Route: 048
     Dates: start: 1993
  14. XANAX [Concomitant]
     Indication: MIGRAINE
     Route: 048
     Dates: start: 1993
  15. LORTAB [Concomitant]
  16. HYDROCODONE WITH TYLENOL [Concomitant]
     Indication: PAIN
     Dosage: 10/325 MG PRN
     Route: 048

REACTIONS (29)
  - Adverse drug reaction [Unknown]
  - Dysphemia [Recovering/Resolving]
  - Crying [Recovered/Resolved]
  - Migraine [Recovered/Resolved]
  - Confusional state [Unknown]
  - Insomnia [Unknown]
  - Sleep disorder [Unknown]
  - Bipolar disorder [Unknown]
  - Memory impairment [Unknown]
  - Condition aggravated [Unknown]
  - Speech disorder [Unknown]
  - Nervousness [Unknown]
  - Feeling abnormal [Unknown]
  - Mood altered [Unknown]
  - Goitre [Unknown]
  - Thyroid neoplasm [Unknown]
  - Nasopharyngitis [Unknown]
  - Dyskinesia [Recovered/Resolved]
  - Dizziness [Recovered/Resolved]
  - Dry mouth [Unknown]
  - Drooling [Unknown]
  - Dyspnoea [Unknown]
  - Dyskinesia [Unknown]
  - Palpitations [Recovered/Resolved]
  - Drug hypersensitivity [Unknown]
  - Drug effect decreased [Unknown]
  - Drug ineffective [Unknown]
  - Drug dose omission [Unknown]
  - Intentional drug misuse [Unknown]
